FAERS Safety Report 7801402-3 (Version None)
Quarter: 2011Q4

REPORT INFORMATION
  Report Type: 
  Country: None (occurrence: None)
  Receive Date: 20111007
  Receipt Date: 20110926
  Transmission Date: 20120403
  Serious: Yes (Hospitalization)
  Sender: FDA-Public Use
  Company Number: US-BAYER-2011-011691

PATIENT
  Age: 39 Year
  Sex: Female
  Weight: 95.238 kg

DRUGS (3)
  1. THYROID TAB [Concomitant]
     Route: 048
  2. YAZ [Suspect]
     Indication: CONTRACEPTION
     Dosage: UNK
     Route: 048
     Dates: start: 20080301, end: 20090522
  3. ASCORBIC ACID [Concomitant]
     Route: 048

REACTIONS (8)
  - INJURY [None]
  - EMOTIONAL DISTRESS [None]
  - DEEP VEIN THROMBOSIS [None]
  - ANXIETY [None]
  - TACHYCARDIA [None]
  - GENERAL PHYSICAL HEALTH DETERIORATION [None]
  - PAIN [None]
  - PULMONARY EMBOLISM [None]
